FAERS Safety Report 23465829 (Version 1)
Quarter: 2024Q1

REPORT INFORMATION
  Report Type: Spontaneous
  Country: FR (occurrence: FR)
  Receive Date: 20240201
  Receipt Date: 20240201
  Transmission Date: 20240410
  Serious: Yes (Life-Threatening)
  Sender: FDA-Public Use
  Company Number: None

PATIENT
  Age: 54 Year
  Sex: Female
  Weight: 79 kg

DRUGS (23)
  1. METHYLPREDNISOLONE SODIUM SUCCINATE [Interacting]
     Active Substance: METHYLPREDNISOLONE SODIUM SUCCINATE
     Indication: Respiratory distress
     Dosage: 60 MG, 1X/DAY
     Route: 042
     Dates: start: 20240104, end: 20240116
  2. PROPOFOL [Interacting]
     Active Substance: PROPOFOL
     Indication: Sedation
     Dosage: 7200 MG, 1X/DAY (300MG/HOUR)
     Route: 042
     Dates: start: 20240104, end: 20240109
  3. PROPOFOL [Interacting]
     Active Substance: PROPOFOL
     Dosage: 6000 MG, 1X/DAY (250MG/HOUR)
     Route: 042
     Dates: start: 20240110, end: 20240113
  4. PROPOFOL [Interacting]
     Active Substance: PROPOFOL
     Dosage: 7200 MG, 1X/DAY (300MG/HOUR)
     Route: 042
     Dates: start: 20240114, end: 20240116
  5. PROPOFOL [Interacting]
     Active Substance: PROPOFOL
     Dosage: 6000 MG, 1X/DAY (250MG/HOUR)
     Route: 042
     Dates: start: 20240117, end: 20240118
  6. NOREPINEPHRINE [Interacting]
     Active Substance: NOREPINEPHRINE
     Indication: Haemodynamic instability
     Dosage: 0.28 UG/KG, FREQ:1 MIN
     Route: 042
     Dates: start: 20240104, end: 20240106
  7. NOREPINEPHRINE [Interacting]
     Active Substance: NOREPINEPHRINE
     Dosage: 0.06 UG/KG, FREQ:1 MIN
     Route: 042
     Dates: start: 20240111, end: 20240113
  8. ZOMETA [Concomitant]
     Active Substance: ZOLEDRONIC ACID
     Indication: Hypercalcaemia
     Dosage: 4000 IU, 1X/DAY
     Route: 058
     Dates: start: 20240104
  9. AMOXICILLIN [Concomitant]
     Active Substance: AMOXICILLIN
     Indication: Infection
     Dosage: 1 G, 2X/DAY (FREQ:12 H)
     Route: 042
     Dates: start: 20240104, end: 20240109
  10. ENOXAPARIN SODIUM [Concomitant]
     Active Substance: ENOXAPARIN SODIUM
     Indication: Thrombosis prophylaxis
     Dosage: 4000 IU, 1X/DAY
     Route: 058
     Dates: start: 20240104
  11. ATRACURIUM [Concomitant]
     Active Substance: ATRACURIUM
     Indication: Muscle tightness
     Dosage: 50 MG, FREQ:1 H
     Route: 042
     Dates: start: 20240104, end: 20240109
  12. ATRACURIUM [Concomitant]
     Active Substance: ATRACURIUM
     Dosage: 60 MG, FREQ:1 H
     Route: 042
     Dates: start: 20240110, end: 20240114
  13. ATRACURIUM [Concomitant]
     Active Substance: ATRACURIUM
     Dosage: 90 MG, FREQ:1 H
     Route: 042
     Dates: start: 20240115
  14. PREDNISONE [Concomitant]
     Active Substance: PREDNISONE
     Dosage: 20 MG, 2X/DAY
  15. ESOMEPRAZOLE SODIUM [Concomitant]
     Active Substance: ESOMEPRAZOLE SODIUM
     Dosage: 40 MG, DAILY
  16. GLYCOPYRROLATE [Concomitant]
     Active Substance: GLYCOPYRROLATE
     Dosage: 1 DF, DAILY
  17. ALBUTEROL SULFATE [Concomitant]
     Active Substance: ALBUTEROL SULFATE
     Dosage: UNK, 3X/DAY
  18. ATROVENT [Concomitant]
     Active Substance: IPRATROPIUM BROMIDE
     Dosage: UNK, 3X/DAY
  19. AMLODIPINE [Concomitant]
     Active Substance: AMLODIPINE BESYLATE
     Dosage: 10 MG, DAILY
  20. IRBESARTAN [Concomitant]
     Active Substance: IRBESARTAN
     Dosage: 300 MG, DAILY
  21. METFORMIN [Concomitant]
     Active Substance: METFORMIN HYDROCHLORIDE
     Dosage: 500 MG, DAILY
  22. ESCITALOPRAM [Concomitant]
     Active Substance: ESCITALOPRAM OXALATE
     Dosage: 20 MG, DAILY
  23. BROMAZEPAM [Concomitant]
     Active Substance: BROMAZEPAM
     Dosage: 3 MG, DAILY

REACTIONS (3)
  - Drug interaction [Not Recovered/Not Resolved]
  - Propofol infusion syndrome [Not Recovered/Not Resolved]
  - Off label use [Unknown]

NARRATIVE: CASE EVENT DATE: 20240119
